FAERS Safety Report 7452820-7 (Version None)
Quarter: 2011Q2

REPORT INFORMATION
  Report Type: 
  Country: None (occurrence: None)
  Receive Date: 20110502
  Receipt Date: 20110418
  Transmission Date: 20111010
  Serious: Yes (Hospitalization, Other)
  Sender: FDA-Public Use
  Company Number: DE-NAPPMUNDI-DEU-2011-0006843

PATIENT
  Sex: Female

DRUGS (10)
  1. CHLORALDURAT BLAU [Concomitant]
  2. MORPHINE SULFATE [Suspect]
     Dosage: 400 MG, DAILY
     Route: 048
     Dates: start: 20101129, end: 20110202
  3. VIREAD [Concomitant]
  4. VIDEX [Concomitant]
  5. YASMIN [Concomitant]
  6. MORPHINE SULFATE [Suspect]
     Indication: DRUG DEPENDENCE
     Dosage: 320 MG, DAILY
     Dates: start: 20110203, end: 20110204
  7. ZYPREXA [Concomitant]
  8. REYATAZ [Concomitant]
  9. RIVOTRIL [Concomitant]
  10. CITALOPRAM [Concomitant]

REACTIONS (3)
  - H1N1 INFLUENZA [None]
  - PNEUMONIA INFLUENZAL [None]
  - CROHN'S DISEASE [None]
